FAERS Safety Report 17115225 (Version 2)
Quarter: 2020Q3

REPORT INFORMATION
  Report Type: Spontaneous
  Country: CA (occurrence: CA)
  Receive Date: 20191205
  Receipt Date: 20200928
  Transmission Date: 20201102
  Serious: Yes (Other)
  Sender: FDA-Public Use
  Company Number: CA-PFIZER INC-2019519686

PATIENT
  Age: 74 Year
  Sex: Female

DRUGS (16)
  1. HUMIRA [Suspect]
     Active Substance: ADALIMUMAB
     Indication: RHEUMATOID ARTHRITIS
     Dosage: UNK
     Route: 058
  2. HYDROXYCHLOROQUINE [Suspect]
     Active Substance: HYDROXYCHLOROQUINE
     Dosage: 400 MG, 1X/DAY
  3. ACETAMINOPHEN;CAFFEINE;DIHYDROCODEINE BITARTRATE [Concomitant]
     Dosage: UNK
  4. PLAQUENIL [Concomitant]
     Active Substance: HYDROXYCHLOROQUINE SULFATE
     Dosage: 400 MG, 1X/DAY
  5. LEVOTHYROXINE. [Suspect]
     Active Substance: LEVOTHYROXINE
     Dosage: UNK, 1X/DAY
  6. RITUXAN [Suspect]
     Active Substance: RITUXIMAB
     Dosage: UNK
     Route: 042
  7. DORZOLAMIDE HYDROCHLORIDE AND TIMOLOL MALEATE [Concomitant]
     Active Substance: DORZOLAMIDE HYDROCHLORIDE\TIMOLOL MALEATE
     Dosage: UNK, 2X/DAY
     Route: 047
  8. REMICADE [Suspect]
     Active Substance: INFLIXIMAB
     Indication: RHEUMATOID ARTHRITIS
     Dosage: UNK
     Route: 042
  9. METHOTREXATE SODIUM. [Suspect]
     Active Substance: METHOTREXATE SODIUM
     Indication: RHEUMATOID ARTHRITIS
     Dosage: 25 MG, WEEKLY
     Route: 058
  10. APO?RAMIPRIL [Suspect]
     Active Substance: RAMIPRIL
     Dosage: UNK, 1X/DAY
  11. ACETAMINOPHEN;CODEINE [Concomitant]
     Active Substance: ACETAMINOPHEN\CODEINE PHOSPHATE
     Dosage: UNK
  12. ACTEMRA [Suspect]
     Active Substance: TOCILIZUMAB
     Dosage: UNK
  13. FOLIC ACID. [Suspect]
     Active Substance: FOLIC ACID
     Dosage: UNK
  14. ORENCIA [Suspect]
     Active Substance: ABATACEPT
     Indication: RHEUMATOID ARTHRITIS
     Dosage: UNK
  15. ACETAMINOPHEN. [Suspect]
     Active Substance: ACETAMINOPHEN
     Dosage: UNK
  16. APO?PREDNISONE [Suspect]
     Active Substance: PREDNISONE
     Dosage: 7 MG, 1X/DAY

REACTIONS (11)
  - Deformity [Unknown]
  - Off label use [Unknown]
  - Gait disturbance [Unknown]
  - Injection site reaction [Unknown]
  - Sciatica [Unknown]
  - Rheumatoid arthritis [Unknown]
  - Hand deformity [Unknown]
  - Condition aggravated [Unknown]
  - Dyspnoea [Unknown]
  - Drug ineffective [Unknown]
  - Product use issue [Unknown]
